FAERS Safety Report 21964375 (Version 4)
Quarter: 2023Q4

REPORT INFORMATION
  Report Type: Spontaneous
  Country: JP (occurrence: JP)
  Receive Date: 20230207
  Receipt Date: 20231020
  Transmission Date: 20240110
  Serious: Yes (Death, Hospitalization, Other)
  Sender: FDA-Public Use
  Company Number: JP-OTSUKA-2023_002822

PATIENT
  Age: 77 Year
  Sex: Male

DRUGS (13)
  1. SAMSCA [Suspect]
     Active Substance: TOLVAPTAN
     Indication: Cardiac failure chronic
     Dosage: 7.5 MG/DAY, QD, AFTER BREAKFAST
     Route: 048
     Dates: start: 20220412, end: 20220426
  2. SAMSCA [Suspect]
     Active Substance: TOLVAPTAN
     Dosage: 3.75 MG/DAY
     Route: 048
     Dates: end: 20220411
  3. ENTRESTO [Suspect]
     Active Substance: SACUBITRIL\VALSARTAN
     Indication: Cardiac failure chronic
     Dosage: 200 MG/DAY, QD
     Route: 048
     Dates: start: 20220412, end: 20220426
  4. AZOSEMIDE [Concomitant]
     Active Substance: AZOSEMIDE
     Indication: Product used for unknown indication
     Dosage: 60 MG/DAY, QD, AFTER BREAKFAST
     Route: 048
     Dates: start: 20220412, end: 20220426
  5. SPIRONOLACTONE [Concomitant]
     Active Substance: SPIRONOLACTONE
     Indication: Product used for unknown indication
     Dosage: 25 MG/DAY, QD, AFTER BREAKFAST
     Route: 048
     Dates: start: 20220412, end: 20220426
  6. WARFARIN POTASSIUM [Concomitant]
     Active Substance: WARFARIN POTASSIUM
     Indication: Product used for unknown indication
     Dosage: 2 MG/DAY, QD, AFTER BREAKFAST
     Route: 048
     Dates: start: 20220412, end: 20220426
  7. ISOSORBIDE MONONITRATE [Concomitant]
     Active Substance: ISOSORBIDE MONONITRATE
     Indication: Product used for unknown indication
     Dosage: 40 MG/DAY, BID, AFTER BREAKFAST AND DINNER
     Route: 048
     Dates: start: 20220412, end: 20220426
  8. FAMOTIDINE [Concomitant]
     Active Substance: FAMOTIDINE
     Indication: Product used for unknown indication
     Dosage: 20 MG/DAY, BID, AFTER BREAKFAST AND DINNER
     Route: 048
     Dates: start: 20220412, end: 20220426
  9. POTASSIUM ASPARTATE [Concomitant]
     Active Substance: POTASSIUM ASPARTATE
     Indication: Product used for unknown indication
     Dosage: 2700 MG/DAY, TID, AFTER EVERY MEAL
     Route: 048
     Dates: start: 20220412, end: 20220426
  10. TRIAZOLAM [Concomitant]
     Active Substance: TRIAZOLAM
     Indication: Product used for unknown indication
     Dosage: 0.125 MG/DAY, QD, BEFORE GOING TO BED
     Route: 048
     Dates: start: 20220412, end: 20220426
  11. TRIAZOLAM [Concomitant]
     Active Substance: TRIAZOLAM
     Dosage: UNK, AT TIMES OF SLEEPLESSNESS
     Route: 048
     Dates: start: 20220412, end: 20220426
  12. FEBUXOSTAT [Concomitant]
     Active Substance: FEBUXOSTAT
     Indication: Product used for unknown indication
     Dosage: 20 MG/DAY, QD, AFTER BREAKFAST
     Route: 048
     Dates: start: 20220412, end: 20220426
  13. CARVEDILOL [Concomitant]
     Active Substance: CARVEDILOL
     Indication: Product used for unknown indication
     Dosage: 10 MG/DAY, BID, AFTER BREAKFAST AND DINNER
     Route: 048
     Dates: start: 20220412, end: 20220426

REACTIONS (8)
  - Hyperkalaemia [Fatal]
  - Haemoptysis [Fatal]
  - Acute kidney injury [Fatal]
  - Respiratory failure [Fatal]
  - Cardiac failure [Unknown]
  - Malaise [Unknown]
  - Blood creatinine increased [Unknown]
  - Underdose [Unknown]

NARRATIVE: CASE EVENT DATE: 20220426
